FAERS Safety Report 5455019-9 (Version None)
Quarter: 2007Q3

REPORT INFORMATION
  Report Type: 
  Country: None (occurrence: None)
  Receive Date: 20070918
  Receipt Date: 20070910
  Transmission Date: 20080115
  Serious: Yes (Other)
  Sender: FDA-Public Use
  Company Number: PHBS2007DK15001

PATIENT
  Sex: Male

DRUGS (2)
  1. ZOMETA [Suspect]
     Indication: OSTEITIS DEFORMANS
     Dosage: 4 MG, UNK
     Route: 042
     Dates: start: 20040427
  2. ZOMETA [Suspect]
     Dosage: 4 MG, UNK
     Route: 042
     Dates: start: 20061120

REACTIONS (4)
  - EYE PAIN [None]
  - IRIDOCYCLITIS [None]
  - OCULAR HYPERAEMIA [None]
  - PHOTOPHOBIA [None]
